FAERS Safety Report 9157191 (Version 1)
Quarter: 2013Q1

REPORT INFORMATION
  Report Type: Spontaneous
  Country: US (occurrence: US)
  Receive Date: 20130312
  Receipt Date: 20130312
  Transmission Date: 20140127
  Serious: No
  Sender: FDA-Public Use
  Company Number: US-BAYER-2013-026908

PATIENT
  Age: 33 Year
  Sex: Female
  Weight: 87.98 kg

DRUGS (13)
  1. BETASERON [Suspect]
     Indication: RELAPSING-REMITTING MULTIPLE SCLEROSIS
     Dosage: 3 MG, UNK
  2. LISINOPRIL [Concomitant]
     Dosage: 10 MG, UNK
  3. CITALOPRAM [Concomitant]
     Dosage: 10 MG, UNK
  4. PREVACID [Concomitant]
     Dosage: 30 MG, UNK
  5. METFORMIN [Concomitant]
     Dosage: 1000 MG, UNK
  6. NEURONTIN [Concomitant]
     Dosage: 100 MG, UNK
  7. VITAMIN C CITRUS [Concomitant]
     Dosage: 500 UNK, UNK
  8. IBUPROFEN [IBUPROFEN] [Concomitant]
     Dosage: 200 MG, UNK
  9. VITAMIN E-100 [Concomitant]
  10. VITAMIN A + D [COLECALCIFEROL,RETINOL] [Concomitant]
  11. ECHINACEA [Concomitant]
     Dosage: 450 MG, UNK
  12. METAMUCIL REGULAR [Concomitant]
     Dosage: 48.57 %, UNK
  13. ADRENAL CAP [Concomitant]
     Dosage: 200 MG, UNK

REACTIONS (2)
  - Influenza like illness [Recovered/Resolved]
  - Injection site bruising [Recovered/Resolved]
